FAERS Safety Report 6534270-0 (Version None)
Quarter: 2009Q4

REPORT INFORMATION
  Report Type: 
  Country: None (occurrence: None)
  Receive Date: 20091214
  Receipt Date: 20070625
  Transmission Date: 20100525
  Serious: Yes (Hospitalization)
  Sender: FDA-Public Use
  Company Number: 504048

PATIENT
  Age: 36 Year
  Sex: Male

DRUGS (2)
  1. PEG-INTERFERON A-2A (RO 25-8310) (PEG-INTERFERON ALFA 2A) [Suspect]
     Indication: HEPATITIS C
     Dosage: 180 UG 1 PER WEEK
  2. RIBAVIRIN [Suspect]
     Indication: HEPATITIS C
     Dosage: 1000 MG DAILY

REACTIONS (3)
  - FATIGUE [None]
  - IDIOPATHIC THROMBOCYTOPENIC PURPURA [None]
  - MYALGIA [None]
